FAERS Safety Report 7020532-X (Version None)
Quarter: 2010Q3

REPORT INFORMATION
  Report Type: 
  Country: None (occurrence: None)
  Receive Date: 20100929
  Receipt Date: 20100921
  Transmission Date: 20110219
  Serious: Yes (Other)
  Sender: FDA-Public Use
  Company Number: DE-ROCHE-729611

PATIENT
  Age: 44 Year
  Sex: Female

DRUGS (1)
  1. ROACTEMRA [Suspect]
     Indication: RHEUMATOID ARTHRITIS
     Dosage: SINGLE DOSE
     Route: 042

REACTIONS (5)
  - CONJUNCTIVITIS [None]
  - DIZZINESS [None]
  - HEADACHE [None]
  - PYREXIA [None]
  - VOMITING [None]
